FAERS Safety Report 13658281 (Version 1)
Quarter: 2017Q2

REPORT INFORMATION
  Report Type: Spontaneous
  Country: US (occurrence: US)
  Receive Date: 20170616
  Receipt Date: 20170616
  Transmission Date: 20170830
  Serious: Yes (Other)
  Sender: FDA-Public Use
  Company Number: US-TORRENT-00002964

PATIENT
  Age: 37 Year
  Sex: Male

DRUGS (2)
  1. ZOLPIDEM TARTRATE. [Suspect]
     Active Substance: ZOLPIDEM TARTRATE
  2. BUPROPION HYDROCHLORIDE. [Suspect]
     Active Substance: BUPROPION HYDROCHLORIDE

REACTIONS (5)
  - Insomnia [Unknown]
  - Parasomnia [Unknown]
  - Abnormal dreams [Unknown]
  - Snoring [Unknown]
  - Suicidal behaviour [Unknown]
